FAERS Safety Report 7964936-7 (Version None)
Quarter: 2011Q4

REPORT INFORMATION
  Report Type: 
  Country: None (occurrence: None)
  Receive Date: 20111208
  Receipt Date: 20111208
  Transmission Date: 20120403
  Serious: Yes (Hospitalization)
  Sender: FDA-Public Use
  Company Number: None

PATIENT
  Age: 86 Year
  Sex: Female
  Weight: 58.059 kg

DRUGS (2)
  1. PRADAXA [Suspect]
     Indication: ATRIAL FIBRILLATION
     Dosage: 150 MG
     Route: 048
     Dates: start: 20110101, end: 20111104
  2. PRADAXA [Concomitant]
     Indication: CAROTID ARTERY STENOSIS
     Dosage: 75 MG
     Route: 048
     Dates: start: 20111108, end: 20111125

REACTIONS (12)
  - DYSPNOEA EXERTIONAL [None]
  - ELECTROCARDIOGRAM ABNORMAL [None]
  - MUSCLE SPASMS [None]
  - DYSGEUSIA [None]
  - HAEMOGLOBIN DECREASED [None]
  - ASTHENIA [None]
  - DYSPHAGIA [None]
  - GOUT [None]
  - TROPONIN INCREASED [None]
  - FATIGUE [None]
  - DECREASED APPETITE [None]
  - HEART RATE INCREASED [None]
